FAERS Safety Report 9142229 (Version 1)
Quarter: 2013Q1

REPORT INFORMATION
  Report Type: Spontaneous
  Country: DE (occurrence: DE)
  Receive Date: 20130305
  Receipt Date: 20130305
  Transmission Date: 20140127
  Serious: Yes (Other)
  Sender: FDA-Public Use
  Company Number: DE-MYLANLABS-2013S1004037

PATIENT
  Age: 0 Year
  Sex: Male
  Weight: 2.17 kg

DRUGS (2)
  1. BISOPROLOL [Suspect]
     Dosage: 10 [MG/D ]/ DOSAGE REDUCED FROM GESTATIONAL WEEK 24 UNTIL DELIVERY
     Route: 064
     Dates: start: 20090714, end: 20100406
  2. THYRONAJOD [Concomitant]
     Route: 064

REACTIONS (4)
  - Small for dates baby [Recovered/Resolved]
  - Bradycardia neonatal [Recovered/Resolved]
  - Neonatal respiratory distress syndrome [Recovered/Resolved]
  - Exposure during pregnancy [Recovered/Resolved]
